FAERS Safety Report 22995429 (Version 5)
Quarter: 2025Q1

REPORT INFORMATION
  Report Type: Report from Study
  Country: CA (occurrence: CA)
  Receive Date: 20230927
  Receipt Date: 20250228
  Transmission Date: 20250408
  Serious: Yes (Hospitalization)
  Sender: TAKEDA
  Company Number: CA-TAKEDA-2023TUS093447

PATIENT
  Sex: Female

DRUGS (20)
  1. HUMAN IMMUNOGLOBULIN G [Suspect]
     Active Substance: HUMAN IMMUNOGLOBULIN G
     Indication: Secondary immunodeficiency
     Dosage: 3 GRAM, 1/WEEK
  2. HUMAN IMMUNOGLOBULIN G [Suspect]
     Active Substance: HUMAN IMMUNOGLOBULIN G
     Indication: Hypogammaglobulinaemia
     Dosage: 3 GRAM, 1/WEEK
     Dates: start: 20230923
  3. HUMAN IMMUNOGLOBULIN G [Suspect]
     Active Substance: HUMAN IMMUNOGLOBULIN G
     Dosage: 4 GRAM, 1/WEEK
  4. CALCIUM [Concomitant]
     Active Substance: CALCIUM
     Dosage: 500 MILLIGRAM, TID
  5. VITAMIN D [Concomitant]
     Active Substance: VITAMIN D NOS
     Dosage: 1000 INTERNATIONAL UNIT, TID
  6. ALENDRONATE [Concomitant]
     Active Substance: ALENDRONATE SODIUM
  7. MAGNESIUM OXIDE [Concomitant]
     Active Substance: MAGNESIUM OXIDE
     Dosage: 420 MILLIGRAM, 2/WEEK
  8. DOCUSATE [Concomitant]
     Active Substance: DOCUSATE
  9. VITAMIN B12 [Concomitant]
     Active Substance: CYANOCOBALAMIN
     Dosage: 1200 MICROGRAM, QD
  10. ADVIL [Concomitant]
     Active Substance: IBUPROFEN
     Indication: Pyrexia
  11. TYLENOL [Concomitant]
     Active Substance: ACETAMINOPHEN
     Indication: Pyrexia
  12. NIMOTUZUMAB [Concomitant]
     Active Substance: NIMOTUZUMAB
  13. ACETAMINOPHEN [Concomitant]
     Active Substance: ACETAMINOPHEN
  14. ALLOPURINOL [Concomitant]
     Active Substance: ALLOPURINOL
  15. CETIRIZINE HYDROCHLORIDE [Concomitant]
     Active Substance: CETIRIZINE HYDROCHLORIDE
  16. DEXAMETHASONE SODIUM PHOSPHATE [Concomitant]
     Active Substance: DEXAMETHASONE SODIUM PHOSPHATE
  17. LEVOFLOXACIN [Concomitant]
     Active Substance: LEVOFLOXACIN
  18. PAXLOVID [Concomitant]
     Active Substance: NIRMATRELVIR\RITONAVIR
  19. VENETOCLAX [Concomitant]
     Active Substance: VENETOCLAX
     Dosage: 200 MILLIGRAM, QD
  20. ZOPICLONE [Concomitant]
     Active Substance: ZOPICLONE

REACTIONS (6)
  - Post procedural complication [Unknown]
  - Infection [Not Recovered/Not Resolved]
  - COVID-19 [Not Recovered/Not Resolved]
  - Upper respiratory tract infection [Recovered/Resolved]
  - Arthropod bite [Recovered/Resolved]
  - Psoriasis [Recovered/Resolved]
